FAERS Safety Report 20673726 (Version 1)
Quarter: 2022Q2

REPORT INFORMATION
  Report Type: Spontaneous
  Country: US (occurrence: None)
  Receive Date: 20220404
  Receipt Date: 20220404
  Transmission Date: 20220721
  Serious: Yes (Hospitalization)
  Sender: FDA-Public Use
  Company Number: None

PATIENT
  Age: 46 Year
  Sex: Female
  Weight: 75.6 kg

DRUGS (6)
  1. EVUSHELD [Suspect]
     Active Substance: CILGAVIMAB\TIXAGEVIMAB
     Indication: Preoperative care
     Dosage: OTHER QUANTITY : 2 INJECTION(S);?OTHER FREQUENCY : ONE TIME;?
     Route: 030
     Dates: start: 20220317, end: 20220317
  2. EVUSHELD [Suspect]
     Active Substance: CILGAVIMAB\TIXAGEVIMAB
     Indication: COVID-19 prophylaxis
  3. EXJADE [Concomitant]
     Active Substance: DEFERASIROX
  4. AMBIEN [Concomitant]
     Active Substance: ZOLPIDEM TARTRATE
  5. TRAMADOL [Concomitant]
     Active Substance: TRAMADOL
  6. MELATONIN [Concomitant]
     Active Substance: MELATONIN

REACTIONS (15)
  - Bone marrow transplant [None]
  - Head discomfort [None]
  - Headache [None]
  - Nausea [None]
  - Vomiting [None]
  - Diarrhoea [None]
  - Pyrexia [None]
  - Constipation [None]
  - Haemorrhage [None]
  - Neutrophil count decreased [None]
  - Platelet count decreased [None]
  - Red blood cell transfusion [None]
  - Platelet transfusion [None]
  - Adverse drug reaction [None]
  - Drug interaction [None]

NARRATIVE: CASE EVENT DATE: 20220317
